FAERS Safety Report 4450791-9 (Version None)
Quarter: 2004Q3

REPORT INFORMATION
  Report Type: 
  Country: None (occurrence: None)
  Receive Date: 20040730
  Receipt Date: 20031118
  Transmission Date: 20050211
  Serious: Yes (Other)
  Sender: FDA-Public Use
  Company Number: 200320016US

PATIENT
  Sex: Female

DRUGS (4)
  1. RIFAMPICIN [Suspect]
     Indication: PULMONARY TUBERCULOSIS
  2. ISONIAZID [Concomitant]
  3. ETHAMBUTOL HCL [Concomitant]
  4. PYRAZINAMIDE [Concomitant]

REACTIONS (1)
  - JAUNDICE CHOLESTATIC [None]
